FAERS Safety Report 19386223 (Version 1)
Quarter: 2021Q2

REPORT INFORMATION
  Report Type: Report from Study
  Country: KR (occurrence: KR)
  Receive Date: 20210608
  Receipt Date: 20210608
  Transmission Date: 20210717
  Serious: Yes (Other)
  Sender: FDA-Public Use
  Company Number: KR-AUROBINDO-AUR-APL-2019-066921

PATIENT
  Age: 77 Year
  Sex: Male

DRUGS (13)
  1. PRALATREXATE [Suspect]
     Active Substance: PRALATREXATE
     Indication: T-CELL LYMPHOMA RECURRENT
     Dosage: 15 MG/M2, 1 WEEK, FOR 3 WEEKS IN A 4 WEEK CYCLE
     Route: 042
  2. BORTEZOMIB. [Suspect]
     Active Substance: BORTEZOMIB
     Indication: ANGIOIMMUNOBLASTIC T-CELL LYMPHOMA STAGE IV
  3. LEUCOVORIN. [Concomitant]
     Active Substance: LEUCOVORIN
     Indication: MUCOSAL INFLAMMATION
     Dosage: 45 MILLIGRAM, DAILY
     Route: 065
  4. VINCRISTINE [Concomitant]
     Active Substance: VINCRISTINE
     Indication: PRODUCT USED FOR UNKNOWN INDICATION
     Dosage: UNK
     Route: 065
  5. CYCLOPHOSPHAMIDE. [Concomitant]
     Active Substance: CYCLOPHOSPHAMIDE
     Indication: PRODUCT USED FOR UNKNOWN INDICATION
     Dosage: UNK
     Route: 065
  6. PREDNISONE. [Concomitant]
     Active Substance: PREDNISONE
     Indication: PRODUCT USED FOR UNKNOWN INDICATION
     Dosage: UNK
     Route: 065
  7. PRALATREXATE [Suspect]
     Active Substance: PRALATREXATE
     Indication: ANGIOIMMUNOBLASTIC T-CELL LYMPHOMA STAGE IV
  8. DOXORUBICIN [Concomitant]
     Active Substance: DOXORUBICIN
     Indication: PRODUCT USED FOR UNKNOWN INDICATION
     Dosage: UNK
     Route: 065
  9. VITAMIN B12 [Concomitant]
     Active Substance: CYANOCOBALAMIN
     Indication: MUCOSAL INFLAMMATION
     Dosage: 1 MILLIGRAM
     Route: 030
  10. PRALATREXATE [Suspect]
     Active Substance: PRALATREXATE
     Indication: T-CELL LYMPHOMA REFRACTORY
     Dosage: 15 MILLIGRAM/SQ. METER
     Route: 042
  11. BORTEZOMIB. [Suspect]
     Active Substance: BORTEZOMIB
     Indication: T-CELL LYMPHOMA RECURRENT
     Dosage: 1.3 MILLIGRAM/SQ. METER
     Route: 042
  12. LEUCOVORIN. [Concomitant]
     Active Substance: LEUCOVORIN
     Dosage: 45 MILLIGRAM, ONCE A DAY
     Route: 065
  13. BORTEZOMIB. [Suspect]
     Active Substance: BORTEZOMIB
     Indication: T-CELL LYMPHOMA REFRACTORY

REACTIONS (8)
  - Mucosal inflammation [Unknown]
  - Off label use [Unknown]
  - Neutropenia [Unknown]
  - Herpes zoster [Unknown]
  - Neuropathy peripheral [Unknown]
  - Thrombocytopenia [Unknown]
  - Decreased appetite [Unknown]
  - Disease progression [Unknown]
